FAERS Safety Report 23999053 (Version 4)
Quarter: 2025Q2

REPORT INFORMATION
  Report Type: Spontaneous
  Country: US (occurrence: US)
  Receive Date: 20240621
  Receipt Date: 20250522
  Transmission Date: 20250717
  Serious: Yes (Other)
  Sender: PFIZER
  Company Number: US-PFIZER INC-202400197372

PATIENT
  Age: 78 Year
  Sex: Female
  Weight: 63.5 kg

DRUGS (5)
  1. XELJANZ XR [Suspect]
     Active Substance: TOFACITINIB CITRATE
     Indication: Rheumatoid arthritis
     Dosage: 11 MG, 1X/DAY
     Route: 048
     Dates: start: 2022, end: 2025
  2. KIRKLAND SIGNATURE ALLERCLEAR [Concomitant]
     Active Substance: LORATADINE
     Dosage: 10 MG, 1X/DAY
  3. AMLODIPINE BESYLATE [Concomitant]
     Active Substance: AMLODIPINE BESYLATE
     Indication: Hypertension
     Dosage: 5 MG, 1X/DAY
     Dates: start: 2022
  4. LEVOTHYROXINE [Concomitant]
     Active Substance: LEVOTHYROXINE
     Indication: Thyroid disorder
     Dosage: 25 UG, 1X/DAY
     Dates: start: 2021
  5. MELOXICAM [Concomitant]
     Active Substance: MELOXICAM
     Indication: Pain

REACTIONS (4)
  - Ankle fracture [Unknown]
  - Lower limb fracture [Unknown]
  - Back pain [Unknown]
  - Overweight [Unknown]

NARRATIVE: CASE EVENT DATE: 20240601
